FAERS Safety Report 9345464 (Version 1)
Quarter: 2013Q2

REPORT INFORMATION
  Report Type: Spontaneous
  Country: US (occurrence: US)
  Receive Date: 20130613
  Receipt Date: 20130613
  Transmission Date: 20140414
  Serious: Yes (Hospitalization)
  Sender: FDA-Public Use
  Company Number: US-B.I. PHARMACEUTICALS,INC./RIDGEFIELD-2013-BI-16653BP

PATIENT
  Age: 75 Year
  Sex: Female
  Weight: 59 kg

DRUGS (11)
  1. SPIRIVA [Suspect]
     Indication: CHRONIC OBSTRUCTIVE PULMONARY DISEASE
     Dosage: 18 MCG
     Route: 055
     Dates: start: 2005
  2. VITAMIN D [Concomitant]
     Route: 048
  3. ENABLEX [Concomitant]
     Dosage: 15 MG
     Route: 048
  4. ATORVASTATIN [Concomitant]
     Indication: BLOOD CHOLESTEROL INCREASED
     Dosage: 10 MG
     Route: 048
  5. ASPIRIN [Concomitant]
     Dosage: DAILY DOSE: 121MG, 1.5 TABLETS DAILY
     Route: 048
  6. FUROSEMIDE [Concomitant]
     Dosage: 40 MG
     Route: 048
  7. ACETAMINOPHEN/ HYDROCODONE [Concomitant]
     Indication: PAIN
     Dosage: STRENGTH: 5/500
     Route: 048
  8. NEXIUM [Concomitant]
     Dosage: 40 MG
     Route: 048
  9. LORAZEPAM [Concomitant]
     Indication: INITIAL INSOMNIA
  10. LISINOPRIL [Concomitant]
     Dosage: 10 MG
     Route: 048
  11. HYDROXYZINE [Concomitant]

REACTIONS (1)
  - Cholelithiasis [Recovered/Resolved]
